FAERS Safety Report 4388099-2 (Version None)
Quarter: 2004Q2

REPORT INFORMATION
  Report Type: 
  Country: None (occurrence: None)
  Receive Date: 20040623
  Receipt Date: 20040616
  Transmission Date: 20050107
  Serious: Yes (Hospitalization, Other)
  Sender: FDA-Public Use
  Company Number: KII-2004-0011425

PATIENT
  Age: 34 Year
  Sex: Female

DRUGS (6)
  1. MORPHINE SULFATE [Suspect]
     Dosage: ORAL
     Route: 048
  2. BENZODIAZEPINE DERIVATIVES () [Suspect]
     Dosage: ORAL
     Route: 048
  3. ACETAMINOPHEN AND HYDROCODONE BITARTRATE [Suspect]
     Dosage: ORAL
     Route: 048
  4. ETHANOL (ETHANOL) [Suspect]
     Dosage: ORAL
     Route: 048
  5. ACETYLSALICYLIC ACID SRT [Suspect]
     Dosage: ORAL
     Route: 048
  6. MARIJUANA (CANNABIS) [Suspect]
     Dosage: ORAL
     Route: 048

REACTIONS (12)
  - AGITATION [None]
  - BLOOD ALCOHOL INCREASED [None]
  - BLOOD ALKALINE PHOSPHATASE INCREASED [None]
  - BLOOD PRESSURE SYSTOLIC INCREASED [None]
  - CEREBROVASCULAR ACCIDENT [None]
  - COMA [None]
  - CONVULSION [None]
  - DRUG SCREEN POSITIVE [None]
  - HEART RATE DECREASED [None]
  - RESPIRATORY RATE DECREASED [None]
  - RESPIRATORY RATE INCREASED [None]
  - SOMNOLENCE [None]
